FAERS Safety Report 16391233 (Version 1)
Quarter: 2019Q2

REPORT INFORMATION
  Report Type: Spontaneous
  Country: US (occurrence: US)
  Receive Date: 20190604
  Receipt Date: 20190604
  Transmission Date: 20190711
  Serious: No
  Sender: FDA-Public Use
  Company Number: US-ELI_LILLY_AND_COMPANY-US201905002352

PATIENT

DRUGS (1)
  1. EMGALITY [Suspect]
     Active Substance: GALCANEZUMAB-GNLM
     Indication: BASILAR MIGRAINE
     Dosage: 01 DOSAGE FORM, UNKNOWN
     Route: 065
     Dates: start: 20190502

REACTIONS (8)
  - Memory impairment [Unknown]
  - Muscular weakness [Unknown]
  - Drug ineffective [Unknown]
  - Paralysis [Unknown]
  - Hypersomnia [Unknown]
  - Confusional state [Unknown]
  - Disturbance in attention [Unknown]
  - Product administered at inappropriate site [Unknown]

NARRATIVE: CASE EVENT DATE: 20190502
